FAERS Safety Report 16768409 (Version 1)
Quarter: 2019Q3

REPORT INFORMATION
  Report Type: Report from Study
  Country: CA (occurrence: CA)
  Receive Date: 20190903
  Receipt Date: 20190903
  Transmission Date: 20191005
  Serious: Yes (Other)
  Sender: FDA-Public Use
  Company Number: CA-PFIZER INC-2019373686

PATIENT
  Age: 35 Year
  Sex: Female

DRUGS (1)
  1. ZOLEDRONIC ACID [Suspect]
     Active Substance: ZOLEDRONIC ACID
     Indication: BREAST CANCER
     Dosage: 4 MG, UNK
     Route: 042

REACTIONS (6)
  - Depression [Unknown]
  - Weight increased [Unknown]
  - Hypokinesia [Unknown]
  - Fall [Unknown]
  - Feeling abnormal [Unknown]
  - Radius fracture [Unknown]
